FAERS Safety Report 13997190 (Version 4)
Quarter: 2017Q4

REPORT INFORMATION
  Report Type: Spontaneous
  Country: IR (occurrence: IR)
  Receive Date: 20170921
  Receipt Date: 20171204
  Transmission Date: 20180321
  Serious: Yes (Life-Threatening, Disabling)
  Sender: FDA-Public Use
  Company Number: IR-LPDUSPRD-20171257

PATIENT
  Age: 48 Year
  Sex: Female

DRUGS (1)
  1. FERINJECT [Suspect]
     Active Substance: FERRIC CARBOXYMALTOSE
     Dosage: 500 MG, 1 TOTAL
     Route: 041
     Dates: start: 20170813

REACTIONS (6)
  - Urticaria [Recovered/Resolved with Sequelae]
  - Flushing [Recovered/Resolved with Sequelae]
  - Hypertension [Recovered/Resolved with Sequelae]
  - Dyspnoea [Recovered/Resolved with Sequelae]
  - Tachycardia [Recovered/Resolved with Sequelae]
  - Tachypnoea [Recovered/Resolved with Sequelae]

NARRATIVE: CASE EVENT DATE: 20170815
